FAERS Safety Report 20988650 (Version 1)
Quarter: 2022Q2

REPORT INFORMATION
  Report Type: Spontaneous
  Country: US (occurrence: US)
  Receive Date: 20220621
  Receipt Date: 20220621
  Transmission Date: 20220720
  Serious: Yes (Other)
  Sender: FDA-Public Use
  Company Number: US-PFIZER INC-PV202200004385

PATIENT

DRUGS (2)
  1. PRECEDEX [Suspect]
     Active Substance: DEXMEDETOMIDINE HYDROCHLORIDE
     Indication: Anxiety
     Dosage: UNK (USED IN CABG SURGERY AND POST OP/ QH LONGER THAN 24/ IV CENTRAL LINE IJ + LC )
     Dates: start: 20211007, end: 20211016
  2. PRECEDEX [Suspect]
     Active Substance: DEXMEDETOMIDINE HYDROCHLORIDE
     Indication: Sedative therapy

REACTIONS (8)
  - Product use issue [Unknown]
  - Cardiac arrest [Unknown]
  - Heart rate decreased [Unknown]
  - Pulseless electrical activity [Unknown]
  - Atrioventricular block complete [Unknown]
  - Hypotension [Unknown]
  - Drug hypersensitivity [Unknown]
  - Sternotomy [Unknown]

NARRATIVE: CASE EVENT DATE: 20211001
